FAERS Safety Report 5727798-4 (Version None)
Quarter: 2008Q2

REPORT INFORMATION
  Report Type: 
  Country: None (occurrence: None)
  Receive Date: 20080501
  Receipt Date: 20070823
  Transmission Date: 20081010
  Serious: Yes (Other)
  Sender: FDA-Public Use
  Company Number: PHEH2007US11659

PATIENT
  Age: 42 Year
  Sex: Female
  Weight: 100.7 kg

DRUGS (2)
  1. LOTREL [Suspect]
     Indication: HYPERTENSION
     Dosage: 5/20 MG, QD
     Dates: start: 20070213
  2. BISOPROLOL FUMARATE [Suspect]
     Dosage: 5 MG, QD
     Dates: start: 20070201

REACTIONS (2)
  - BLOOD PRESSURE INADEQUATELY CONTROLLED [None]
  - DIARRHOEA [None]
